FAERS Safety Report 22649344 (Version 1)
Quarter: 2023Q2

REPORT INFORMATION
  Report Type: Spontaneous
  Country: CA (occurrence: None)
  Receive Date: 20230628
  Receipt Date: 20230628
  Transmission Date: 20230721
  Serious: Yes (Hospitalization)
  Sender: FDA-Public Use
  Company Number: CA-ROCHE-3377061

PATIENT
  Age: 72 Year
  Sex: Female

DRUGS (7)
  1. RITUXIMAB [Suspect]
     Active Substance: RITUXIMAB
     Indication: Granulomatosis with polyangiitis
     Route: 042
  2. CETIRIZINE HYDROCHLORIDE [Concomitant]
     Active Substance: CETIRIZINE HYDROCHLORIDE
  3. IBUPROFEN [Concomitant]
     Active Substance: IBUPROFEN
  4. METHOTREXATE [Concomitant]
     Active Substance: METHOTREXATE
     Route: 048
  5. NAPROXEN [Concomitant]
     Active Substance: NAPROXEN
  6. ROSUVASTATIN CALCIUM [Concomitant]
     Active Substance: ROSUVASTATIN CALCIUM
  7. ZOPICLONE [Concomitant]
     Active Substance: ZOPICLONE

REACTIONS (2)
  - COVID-19 [Unknown]
  - Pneumonia [Unknown]
